FAERS Safety Report 12610813 (Version 1)
Quarter: 2016Q3

REPORT INFORMATION
  Report Type: Report from Study
  Country: US (occurrence: US)
  Receive Date: 20160801
  Receipt Date: 20160801
  Transmission Date: 20161109
  Serious: Yes (Other)
  Sender: FDA-Public Use
  Company Number: US-AMGEN-USASL2016089940

PATIENT
  Age: 65 Year
  Sex: Female
  Weight: 53.52 kg

DRUGS (2)
  1. PROLIA [Suspect]
     Active Substance: DENOSUMAB
     Indication: OSTEOPENIA
     Dosage: UNK
     Route: 065
  2. PREDNISONE. [Concomitant]
     Active Substance: PREDNISONE

REACTIONS (9)
  - Dizziness [Recovered/Resolved]
  - Urticaria [Unknown]
  - Off label use [Unknown]
  - Dyspnoea [Unknown]
  - Rash pruritic [Recovering/Resolving]
  - Flatulence [Unknown]
  - Personality disorder [Unknown]
  - Arthralgia [Not Recovered/Not Resolved]
  - Pain in extremity [Unknown]

NARRATIVE: CASE EVENT DATE: 2015
